FAERS Safety Report 12123910 (Version 5)
Quarter: 2016Q4

REPORT INFORMATION
  Report Type: Report from Study
  Country: IT (occurrence: IT)
  Receive Date: 20160228
  Receipt Date: 20161226
  Transmission Date: 20170206
  Serious: Yes (Hospitalization, Other)
  Sender: FDA-Public Use
  Company Number: IT-BRISTOL-MYERS SQUIBB COMPANY-BMS-2016-013202

PATIENT
  Age: 78 Year
  Sex: Male

DRUGS (2)
  1. WARFARIN SODIUM. [Concomitant]
     Active Substance: WARFARIN SODIUM
     Indication: PRODUCT USED FOR UNKNOWN INDICATION
     Route: 065
  2. NIVOLUMAB [Suspect]
     Active Substance: NIVOLUMAB
     Indication: RENAL CELL CARCINOMA
     Dosage: 170 MG, Q2WK
     Route: 042
     Dates: start: 20151211, end: 20160217

REACTIONS (4)
  - Myocardial infarction [Not Recovered/Not Resolved]
  - Cardiac failure [Unknown]
  - Malignant neoplasm progression [Unknown]
  - Haemoptysis [Unknown]

NARRATIVE: CASE EVENT DATE: 20160115
